FAERS Safety Report 10795475 (Version 1)
Quarter: 2015Q1

REPORT INFORMATION
  Report Type: Spontaneous
  Country: US (occurrence: US)
  Receive Date: 20150215
  Receipt Date: 20150215
  Transmission Date: 20150721
  Serious: Yes (Death, Other)
  Sender: FDA-Public Use
  Company Number: US-ACTAVIS-2015-01814

PATIENT
  Age: 27 Year
  Sex: Female
  Weight: 71 kg

DRUGS (8)
  1. MISOPROSTOL. [Concomitant]
     Active Substance: MISOPROSTOL
     Indication: PRODUCT USED FOR UNKNOWN INDICATION
     Dosage: UNK
     Route: 065
  2. ACETAMINOPHEN (UNKNOWN) [Suspect]
     Active Substance: ACETAMINOPHEN
     Indication: ABDOMINAL PAIN UPPER
     Dosage: 2.6 G, DAILY; DAY 1
     Route: 065
  3. ACETAMINOPHEN (UNKNOWN) [Suspect]
     Active Substance: ACETAMINOPHEN
     Dosage: 5 DF, UNKNOWN (5 BOTTLES)
     Route: 048
  4. HYDROMORPHONE [Concomitant]
     Active Substance: HYDROMORPHONE
     Indication: PRODUCT USED FOR UNKNOWN INDICATION
     Dosage: UNK
     Route: 065
  5. ACETAMINOPHEN (UNKNOWN) [Suspect]
     Active Substance: ACETAMINOPHEN
     Indication: COMPLETED SUICIDE
     Dosage: 2.95 G, DAILY, DAY 2
     Route: 065
  6. SUCRALFATE. [Concomitant]
     Active Substance: SUCRALFATE
     Indication: PRODUCT USED FOR UNKNOWN INDICATION
     Dosage: UNK
     Route: 065
  7. OXYCODONE-ACETAMINOPHEN (ATLLC) [Suspect]
     Active Substance: ACETAMINOPHEN\OXYCODONE HYDROCHLORIDE
     Indication: COMPLETED SUICIDE
     Dosage: UNK
     Route: 048
  8. PANTOPRAZOLE [Concomitant]
     Active Substance: PANTOPRAZOLE SODIUM
     Indication: PRODUCT USED FOR UNKNOWN INDICATION
     Dosage: UNK
     Route: 065

REACTIONS (11)
  - Loss of consciousness [Unknown]
  - Completed suicide [Fatal]
  - Blood bilirubin increased [Unknown]
  - Body temperature increased [Not Recovered/Not Resolved]
  - Seizure [Unknown]
  - Hypotension [Recovered/Resolved]
  - Intentional overdose [Fatal]
  - Transaminases increased [Not Recovered/Not Resolved]
  - International normalised ratio increased [Not Recovered/Not Resolved]
  - Ammonia increased [Unknown]
  - Hypoglycaemia [Unknown]
